FAERS Safety Report 10332010 (Version 2)
Quarter: 2014Q3

REPORT INFORMATION
  Report Type: Spontaneous
  Country: US (occurrence: US)
  Receive Date: 20140722
  Receipt Date: 20140729
  Transmission Date: 20150326
  Serious: No
  Sender: FDA-Public Use
  Company Number: US-009507513-1407USA008655

PATIENT

DRUGS (2)
  1. SINGULAIR [Suspect]
     Active Substance: MONTELUKAST SODIUM
     Indication: SLEEP APNOEA SYNDROME
     Route: 048
  2. CORTICOSTEROIDS (UNSPECIFIED) [Suspect]
     Active Substance: UNSPECIFIED INGREDIENT
     Indication: SLEEP APNOEA SYNDROME
     Route: 045

REACTIONS (1)
  - Headache [Unknown]
